FAERS Safety Report 15461882 (Version 1)
Quarter: 2018Q4

REPORT INFORMATION
  Report Type: Spontaneous
  Country: DK (occurrence: DE)
  Receive Date: 20181003
  Receipt Date: 20181003
  Transmission Date: 20190204
  Serious: Yes (Life-Threatening, Hospitalization)
  Sender: FDA-Public Use
  Company Number: DE-ALLERGAN-1000014592

PATIENT
  Age: 31 Year
  Sex: Female
  Weight: 60 kg

DRUGS (14)
  1. CITALOPRAM HYDROBROMIDE - BP [Suspect]
     Active Substance: CITALOPRAM HYDROBROMIDE
     Indication: PRODUCT USED FOR UNKNOWN INDICATION
     Dosage: UNK UNK, SINGLE
     Route: 048
     Dates: start: 20100608, end: 20100608
  2. HOGGAR NIGHT [Suspect]
     Active Substance: DOXYLAMINE SUCCINATE
     Indication: OVERDOSE
  3. BALDRIAN-DISPERT [Suspect]
     Active Substance: HERBALS
     Indication: OVERDOSE
  4. PARACETAMOL [Suspect]
     Active Substance: ACETAMINOPHEN
     Indication: PRODUCT USED FOR UNKNOWN INDICATION
     Dosage: 15 G, SINGLE
     Route: 048
     Dates: start: 20100608, end: 20100608
  5. BALDRIAN-DISPERT [Suspect]
     Active Substance: HERBALS
     Indication: PRODUCT USED FOR UNKNOWN INDICATION
     Dosage: UNK UNK, SINGLE
     Route: 048
     Dates: start: 20100608, end: 20100608
  6. SEROQUEL [Suspect]
     Active Substance: QUETIAPINE FUMARATE
     Indication: PRODUCT USED FOR UNKNOWN INDICATION
     Dosage: UNK UNK, SINGLE
     Route: 048
     Dates: start: 20100608, end: 20100608
  7. PARACETAMOL [Suspect]
     Active Substance: ACETAMINOPHEN
     Indication: OVERDOSE
  8. HOGGAR NIGHT [Suspect]
     Active Substance: DOXYLAMINE SUCCINATE
     Indication: PRODUCT USED FOR UNKNOWN INDICATION
     Dosage: UNK UNK, SINGLE
     Route: 048
     Dates: start: 20100608, end: 20100608
  9. HOGGAR BALANCE [Suspect]
     Active Substance: HERBALS\HOMEOPATHICS\PASSIFLORA INCARNATA FLOWER
     Indication: OVERDOSE
  10. SEROQUEL [Suspect]
     Active Substance: QUETIAPINE FUMARATE
     Indication: OVERDOSE
  11. ALCOHOL. [Suspect]
     Active Substance: ALCOHOL
     Indication: PRODUCT USED FOR UNKNOWN INDICATION
     Dosage: UNK UNK, SINGLE
     Route: 048
     Dates: start: 20100608, end: 20100608
  12. CITALOPRAM HYDROBROMIDE - BP [Suspect]
     Active Substance: CITALOPRAM HYDROBROMIDE
     Indication: OVERDOSE
  13. HOGGAR BALANCE [Suspect]
     Active Substance: HERBALS\HOMEOPATHICS\PASSIFLORA INCARNATA FLOWER
     Indication: PRODUCT USED FOR UNKNOWN INDICATION
     Dosage: UNK UNK, SINGLE
     Route: 048
     Dates: start: 20100608, end: 20100608
  14. ALCOHOL. [Suspect]
     Active Substance: ALCOHOL
     Indication: OVERDOSE

REACTIONS (6)
  - Intentional overdose [Unknown]
  - Hypotension [Unknown]
  - Somnolence [Unknown]
  - Suicide attempt [Unknown]
  - Blood pressure systolic decreased [Unknown]
  - Blood creatine phosphokinase increased [Unknown]

NARRATIVE: CASE EVENT DATE: 20100608
